FAERS Safety Report 12577379 (Version 4)
Quarter: 2021Q4

REPORT INFORMATION
  Report Type: Report from Study
  Country: BR (occurrence: BR)
  Receive Date: 20160720
  Receipt Date: 20211003
  Transmission Date: 20220303
  Serious: Yes (Hospitalization, Other)
  Sender: FDA-Public Use
  Company Number: BR-BIOGEN-2016BI00268116

PATIENT
  Sex: Female

DRUGS (8)
  1. AVONEX PEN [Suspect]
     Active Substance: INTERFERON BETA-1A
     Indication: Multiple sclerosis
     Dosage: ON SUNDAYS
     Route: 065
     Dates: start: 201505, end: 201604
  2. AVONEX PEN [Suspect]
     Active Substance: INTERFERON BETA-1A
     Route: 030
     Dates: start: 2015
  3. AVONEX PEN [Suspect]
     Active Substance: INTERFERON BETA-1A
  4. AVONEX PEN [Suspect]
     Active Substance: INTERFERON BETA-1A
  5. RIVOTRIL [Concomitant]
     Active Substance: CLONAZEPAM
     Indication: Product used for unknown indication
     Dosage: 5 DROPS AND NOW INCREASED DOSAGE TO 30 DROPS
     Route: 065
     Dates: start: 20150101
  6. RIVOTRIL [Concomitant]
     Active Substance: CLONAZEPAM
     Route: 065
  7. ESCITALOPRAM [Concomitant]
     Active Substance: ESCITALOPRAM OXALATE
     Indication: Product used for unknown indication
     Route: 065
     Dates: start: 20150101
  8. GILENYA [Concomitant]
     Active Substance: FINGOLIMOD HYDROCHLORIDE
     Indication: Product used for unknown indication
     Route: 065

REACTIONS (15)
  - Hemiparesis [Recovered/Resolved]
  - Central nervous system lesion [Not Recovered/Not Resolved]
  - Sensory loss [Recovered/Resolved]
  - Deafness unilateral [Unknown]
  - Multiple sclerosis relapse [Recovered/Resolved]
  - Tremor [Unknown]
  - Balance disorder [Unknown]
  - Gait disturbance [Unknown]
  - Hypoacusis [Unknown]
  - Treatment failure [Recovered/Resolved]
  - Hemiparaesthesia [Recovered/Resolved]
  - Hemiparesis [Recovered/Resolved]
  - Hypertonic bladder [Not Recovered/Not Resolved]
  - Feeling abnormal [Unknown]
  - Asthenia [Unknown]

NARRATIVE: CASE EVENT DATE: 20150101
